FAERS Safety Report 17220135 (Version 1)
Quarter: 2019Q4

REPORT INFORMATION
  Report Type: Report from Study
  Country: IT (occurrence: IT)
  Receive Date: 20191231
  Receipt Date: 20191231
  Transmission Date: 20200122
  Serious: Yes (Hospitalization, Other)
  Sender: FDA-Public Use
  Company Number: IT-MYLANLABS-2019M1131947

PATIENT
  Age: 80 Year
  Sex: Female
  Weight: 73 kg

DRUGS (11)
  1. RIVAROXABAN [Concomitant]
     Active Substance: RIVAROXABAN
     Indication: ATRIAL FIBRILLATION
     Dosage: 15 MG, QD
     Route: 065
     Dates: start: 20160405
  2. PANTOPRAZOLE [Suspect]
     Active Substance: PANTOPRAZOLE
     Indication: COUGH
     Dosage: 40 MG, QD
     Route: 065
     Dates: start: 20160317, end: 20160717
  3. EUTIROX [Concomitant]
     Active Substance: LEVOTHYROXINE SODIUM
     Indication: HYPOTHYROIDISM
     Dosage: 75 MG, QD
     Route: 065
     Dates: start: 200506
  4. ALLOPURINOL. [Concomitant]
     Active Substance: ALLOPURINOL
     Indication: HYPERURICAEMIA
     Dosage: 150 MG, QD
     Route: 065
     Dates: start: 20160115
  5. RANITIDINA                         /00550802/ [Concomitant]
     Active Substance: RANITIDINE HYDROCHLORIDE
     Indication: COUGH
     Dosage: 150 MG, QD
     Route: 065
     Dates: start: 20160318
  6. EZETIMIBE. [Concomitant]
     Active Substance: EZETIMIBE
     Indication: HYPERCHOLESTEROLAEMIA
     Dosage: 10 MG, QD
     Route: 065
     Dates: start: 20151113
  7. BISOPROLOL [Concomitant]
     Active Substance: BISOPROLOL
     Indication: ATRIAL FIBRILLATION
     Dosage: 7.5 MG, QD
     Route: 065
     Dates: start: 20160317
  8. FUROSEMIDE. [Concomitant]
     Active Substance: FUROSEMIDE
     Indication: CARDIAC FAILURE
     Dosage: 50 MG, QD
     Route: 065
     Dates: start: 20160405
  9. VALSARTAN. [Suspect]
     Active Substance: VALSARTAN
     Indication: CARDIAC FAILURE CHRONIC
     Dosage: 160 MG, BID
     Route: 048
     Dates: start: 20160323
  10. ALPRAZOLAM. [Concomitant]
     Active Substance: ALPRAZOLAM
     Indication: INSOMNIA
     Dosage: 0.50 MG, QD
     Route: 065
     Dates: start: 20150713
  11. LAMOTRIGINA [Concomitant]
     Active Substance: LAMOTRIGINE
     Indication: EPILEPSY
     Dosage: 100 MG, QD
     Route: 065
     Dates: start: 20100611

REACTIONS (2)
  - Hyponatraemia [Recovering/Resolving]
  - Tremor [Recovering/Resolving]

NARRATIVE: CASE EVENT DATE: 20160717
